FAERS Safety Report 8618932 (Version 3)
Quarter: 2014Q1

REPORT INFORMATION
  Report Type: Spontaneous
  Country: US (occurrence: None)
  Receive Date: 20120323
  Receipt Date: 20140306
  Transmission Date: 20141002
  Serious: Yes (Other)
  Sender: FDA-Public Use
  Company Number: 163-21880-11043096

PATIENT
  Age: 78 Year
  Sex: Female
  Weight: 61.7 kg

DRUGS (5)
  1. REVLIMID [Suspect]
     Indication: PLASMA CELL MYELOMA
     Dosage: 25 MG, 14 IN 21 D, PO?
     Route: 048
     Dates: start: 20110330, end: 2011
  2. DECADRON [Suspect]
     Indication: PLASMA CELL MYELOMA
     Dosage: 20 MG, QD X 2D
     Dates: start: 201003, end: 201003
  3. ALLEGRA (FEXOFENADINE HYDROCHLORIDE) [Concomitant]
  4. TYLENOL (PARACETAMOL) [Concomitant]
  5. VELCADE(BORTEZOMIB) (INJECTION) [Concomitant]

REACTIONS (5)
  - Chest discomfort [None]
  - Oedema peripheral [None]
  - Rash [None]
  - Dry skin [None]
  - Memory impairment [None]
